FAERS Safety Report 9284388 (Version 2)
Quarter: 2014Q3

REPORT INFORMATION
  Report Type: Spontaneous
  Country: US (occurrence: US)
  Receive Date: 20130510
  Receipt Date: 20140831
  Transmission Date: 20150326
  Serious: Yes (Hospitalization, Other)
  Sender: FDA-Public Use
  Company Number: US-009507513-1305USA004822

PATIENT
  Sex: Female
  Weight: 62.59 kg

DRUGS (3)
  1. NUVARING [Suspect]
     Active Substance: ETHINYL ESTRADIOL\ETONOGESTREL
     Indication: NIGHT SWEATS
     Dosage: 0.12 MG/0.015 MG, Q4 WEEKS
     Route: 067
     Dates: start: 200904, end: 20110514
  2. CLARITIN [Concomitant]
     Active Substance: LORATADINE
     Indication: PRODUCT USED FOR UNKNOWN INDICATION
     Dosage: 10 MG, QD
     Route: 048
  3. FLONASE [Concomitant]
     Active Substance: FLUTICASONE PROPIONATE
     Indication: PRODUCT USED FOR UNKNOWN INDICATION

REACTIONS (9)
  - Urine analysis abnormal [Unknown]
  - Off label use [Recovered/Resolved]
  - Pulmonary embolism [Unknown]
  - Anxiety [Unknown]
  - Urticaria [Unknown]
  - Abdominal distension [Unknown]
  - Hypertension [Unknown]
  - Diarrhoea [Unknown]
  - Cyst rupture [Unknown]

NARRATIVE: CASE EVENT DATE: 200904
